FAERS Safety Report 10183788 (Version 1)
Quarter: 2014Q2

REPORT INFORMATION
  Report Type: Spontaneous
  Country: US (occurrence: US)
  Receive Date: 20140520
  Receipt Date: 20140520
  Transmission Date: 20141212
  Serious: Yes (Hospitalization, Other)
  Sender: FDA-Public Use
  Company Number: US-TEVA-481580USA

PATIENT
  Age: 59 Year
  Sex: Female
  Weight: 50.85 kg

DRUGS (5)
  1. FENTORA [Suspect]
     Indication: PAIN IN EXTREMITY
     Dates: start: 2010, end: 201404
  2. METHADONE [Suspect]
     Indication: PAIN
  3. MORPHINE [Concomitant]
     Indication: PAIN
  4. VALIUM [Concomitant]
     Indication: MYALGIA
  5. SOMA [Concomitant]
     Indication: MYALGIA

REACTIONS (8)
  - Knee arthroplasty [Recovered/Resolved]
  - Pneumonia [Recovered/Resolved]
  - Dependence [Not Recovered/Not Resolved]
  - Drug withdrawal syndrome [Not Recovered/Not Resolved]
  - Weight decreased [Not Recovered/Not Resolved]
  - Pain [Not Recovered/Not Resolved]
  - Mental disorder [Not Recovered/Not Resolved]
  - Off label use [Unknown]
